FAERS Safety Report 12439711 (Version 2)
Quarter: 2016Q2

REPORT INFORMATION
  Report Type: Spontaneous
  Country: PL (occurrence: PL)
  Receive Date: 20160602
  Receipt Date: 20160602
  Transmission Date: 20160815
  Serious: Yes (Life-Threatening, Hospitalization)
  Sender: FDA-Public Use
  Company Number: PL-TEVA-662444ISR

PATIENT
  Age: 94 Year
  Sex: Male

DRUGS (1)
  1. SUMAMED [Suspect]
     Active Substance: AZITHROMYCIN ANHYDROUS
     Indication: PNEUMONIA
     Dosage: 500 MILLIGRAM DAILY;
     Route: 048
     Dates: start: 201604, end: 201604

REACTIONS (6)
  - Arrhythmia [Recovered/Resolved]
  - Visual acuity reduced [Recovered/Resolved with Sequelae]
  - Hypoacusis [Recovered/Resolved]
  - Coma [Unknown]
  - Vocal cord inflammation [Recovered/Resolved]
  - Aphasia [Recovered/Resolved]

NARRATIVE: CASE EVENT DATE: 201604
